FAERS Safety Report 25779965 (Version 1)
Quarter: 2025Q3

REPORT INFORMATION
  Report Type: Report from Study
  Country: US (occurrence: US)
  Receive Date: 20250909
  Receipt Date: 20250909
  Transmission Date: 20251020
  Serious: No
  Sender: MALLINCKRODT
  Company Number: US-MALLINCKRODT-MNK202505552

PATIENT
  Age: 55 Year
  Sex: Female

DRUGS (1)
  1. CORTICOTROPIN [Suspect]
     Active Substance: CORTICOTROPIN
     Indication: Scleritis
     Dates: start: 20250722

REACTIONS (3)
  - Skin discolouration [Unknown]
  - Burning sensation [Unknown]
  - Dry skin [Unknown]

NARRATIVE: CASE EVENT DATE: 20250801
